FAERS Safety Report 7132513-6 (Version None)
Quarter: 2010Q4

REPORT INFORMATION
  Report Type: 
  Country: None (occurrence: None)
  Receive Date: 20101202
  Receipt Date: 20101124
  Transmission Date: 20110411
  Serious: Yes (Death, Hospitalization)
  Sender: FDA-Public Use
  Company Number: JP-ROCHE-744767

PATIENT
  Sex: Male
  Weight: 76 kg

DRUGS (11)
  1. AVASTIN [Suspect]
     Indication: COLON CANCER METASTATIC
     Route: 041
     Dates: start: 20090915, end: 20090929
  2. ELPLAT [Concomitant]
     Route: 041
     Dates: start: 20090330
  3. 5-FU [Concomitant]
     Dates: start: 20090330
  4. LEVOFOLINATE [Concomitant]
     Route: 041
     Dates: start: 20090330
  5. URSO 250 [Concomitant]
     Route: 048
     Dates: start: 20090227
  6. GLYCYRON [Concomitant]
     Route: 048
     Dates: start: 20090227
  7. RAMELTEON [Concomitant]
     Route: 041
     Dates: start: 20090330
  8. URIEF [Concomitant]
     Route: 048
     Dates: start: 20090403
  9. GASTROM [Concomitant]
     Route: 048
     Dates: start: 20090405
  10. TAKEPRON [Concomitant]
     Route: 048
     Dates: start: 20090425
  11. DEXART [Concomitant]
     Dosage: FREQUENCY: 1/
     Route: 041
     Dates: start: 20090915, end: 20090929

REACTIONS (2)
  - DISEASE PROGRESSION [None]
  - LARGE INTESTINE PERFORATION [None]
